FAERS Safety Report 5746840-8 (Version None)
Quarter: 2008Q2

REPORT INFORMATION
  Report Type: 
  Country: None (occurrence: None)
  Receive Date: 20080520
  Receipt Date: 20080520
  Transmission Date: 20081010
  Serious: Yes (Death)
  Sender: FDA-Public Use
  Company Number: None

PATIENT
  Age: 85 Year
  Sex: Female
  Weight: 43.0917 kg

DRUGS (1)
  1. DIGITEK  125MCG  BERTEK AMIOE [Suspect]
     Indication: CARDIAC DISORDER
     Dosage: 1 PILL ONCE A DAY ORAL
     Route: 048
     Dates: start: 20000101, end: 20080418

REACTIONS (11)
  - ANOREXIA [None]
  - ASTHENIA [None]
  - BLOOD PRESSURE DECREASED [None]
  - CONFUSIONAL STATE [None]
  - DIARRHOEA [None]
  - DYSPNOEA EXERTIONAL [None]
  - FALL [None]
  - OEDEMA PERIPHERAL [None]
  - PULMONARY OEDEMA [None]
  - TREMOR [None]
  - WEIGHT DECREASED [None]
